FAERS Safety Report 14879068 (Version 2)
Quarter: 2018Q2

REPORT INFORMATION
  Report Type: Spontaneous
  Country: US (occurrence: US)
  Receive Date: 20180511
  Receipt Date: 20180515
  Transmission Date: 20180711
  Serious: No
  Sender: FDA-Public Use
  Company Number: US-SA-2018SA043523

PATIENT
  Age: 60 Year
  Sex: Female

DRUGS (11)
  1. INVOKANA [Concomitant]
     Active Substance: CANAGLIFLOZIN
  2. FARXIGA [Suspect]
     Active Substance: DAPAGLIFLOZIN PROPANEDIOL
     Route: 065
  3. LYXUMIA [Suspect]
     Active Substance: LIXISENATIDE
     Route: 065
  4. TRESIBA [Concomitant]
     Active Substance: INSULIN DEGLUDEC
  5. NOVOLOG [Concomitant]
     Active Substance: INSULIN ASPART
  6. TOUJEO [Suspect]
     Active Substance: INSULIN GLARGINE
     Route: 051
  7. HUMALOG [Suspect]
     Active Substance: INSULIN LISPRO
     Route: 065
  8. APIDRA [Suspect]
     Active Substance: INSULIN GLULISINE
     Route: 058
  9. XULTOPHY 100/3.6 [Suspect]
     Active Substance: INSULIN DEGLUDEC\LIRAGLUTIDE
     Route: 065
  10. GALVUS [Concomitant]
     Active Substance: VILDAGLIPTIN
     Route: 065
  11. VICTOZA [Concomitant]
     Active Substance: LIRAGLUTIDE

REACTIONS (1)
  - Glycosylated haemoglobin increased [Unknown]
